FAERS Safety Report 9778424 (Version 2)
Quarter: 2014Q1

REPORT INFORMATION
  Report Type: Spontaneous
  Country: CA (occurrence: CA)
  Receive Date: 20131223
  Receipt Date: 20140123
  Transmission Date: 20141002
  Serious: Yes (Other)
  Sender: FDA-Public Use
  Company Number: CA-AMGEN-CANSP2013088998

PATIENT
  Age: 68 Year
  Sex: Female
  Weight: 69.2 kg

DRUGS (6)
  1. PROLIA [Suspect]
     Indication: OSTEOPOROSIS POSTMENOPAUSAL
     Dosage: 60 MG, Q6MO
     Route: 058
     Dates: start: 20130624
  2. BUDESONIDE [Suspect]
     Indication: ASTHMA
     Dosage: 100 MG, BID
     Route: 065
  3. SYMBICORT [Suspect]
     Indication: ASTHMA
     Dosage: 2, BID
     Route: 065
  4. CALCIUM CARBONATE [Concomitant]
     Indication: PROPHYLAXIS
     Dosage: 400 MG, BID
     Route: 048
  5. ANDRIOL [Concomitant]
     Indication: LIBIDO DECREASED
     Dosage: 40 MG, BID
     Route: 048
  6. VITAMIN D                          /00107901/ [Concomitant]
     Indication: PROPHYLAXIS
     Dosage: 1000 IU, BID
     Route: 048

REACTIONS (1)
  - Ankle fracture [Recovering/Resolving]
